FAERS Safety Report 10221671 (Version 2)
Quarter: 2014Q2

REPORT INFORMATION
  Report Type: Spontaneous
  Country: US (occurrence: US)
  Receive Date: 20140606
  Receipt Date: 20140611
  Transmission Date: 20141212
  Serious: No
  Sender: FDA-Public Use
  Company Number: US-PFIZER INC-2014155415

PATIENT
  Sex: Female

DRUGS (2)
  1. CHANTIX [Suspect]
     Dosage: UNK
     Dates: start: 2014, end: 2014
  2. CHANTIX [Suspect]
     Dosage: UNK, 2X/DAY
     Dates: start: 2014

REACTIONS (2)
  - Nausea [Unknown]
  - Vomiting [Unknown]
